FAERS Safety Report 8223876-9 (Version None)
Quarter: 2012Q1

REPORT INFORMATION
  Report Type: 
  Country: None (occurrence: None)
  Receive Date: 20120321
  Receipt Date: 20120316
  Transmission Date: 20120608
  Serious: Yes (Hospitalization, Congenital Anomaly, Other)
  Sender: FDA-Public Use
  Company Number: US-PFIZER INC-2011288395

PATIENT
  Sex: Male

DRUGS (6)
  1. ZOLOFT [Suspect]
     Dosage: 50 MG, 1X/DAY
     Route: 064
  2. SERTRALINE [Concomitant]
     Dosage: 50 MG, UNK
     Route: 064
     Dates: start: 20081230
  3. DIPHENHYDRAMINE [Concomitant]
     Dosage: 50 MG, UNK
     Route: 064
     Dates: start: 20090423
  4. TRIAMCINOLONE [Concomitant]
     Dosage: UNK
     Route: 064
     Dates: start: 20090420
  5. ZOLOFT [Suspect]
     Dosage: 50 MG ONE TABLET PER ORAL TWICE A DAY
     Route: 064
     Dates: start: 20090127
  6. HYDROCORTISONE [Concomitant]
     Dosage: UNK
     Route: 064
     Dates: start: 20090423

REACTIONS (14)
  - ANOMALOUS PULMONARY VENOUS CONNECTION [None]
  - HEART DISEASE CONGENITAL [None]
  - RIGHT VENTRICULAR HYPERTROPHY [None]
  - CARDIOMEGALY [None]
  - MATERNAL EXPOSURE TIMING UNSPECIFIED [None]
  - PULMONARY VALVE INCOMPETENCE [None]
  - GROWTH RETARDATION [None]
  - PECTUS EXCAVATUM [None]
  - ATRIAL SEPTAL DEFECT [None]
  - TRICUSPID VALVE INCOMPETENCE [None]
  - RIGHT ATRIAL DILATATION [None]
  - DILATATION VENTRICULAR [None]
  - MOTOR DYSFUNCTION [None]
  - SCOLIOSIS [None]
